FAERS Safety Report 20226883 (Version 18)
Quarter: 2024Q1

REPORT INFORMATION
  Report Type: Other
  Country: DE (occurrence: None)
  Receive Date: 20211224
  Receipt Date: 20240102
  Transmission Date: 20240409
  Serious: No
  Sender: FDA-Public Use
  Company Number: DE-ROCHE-2967053

PATIENT
  Age: 45 Year
  Sex: Female
  Weight: 68 kg

DRUGS (5)
  1. OCREVUS [Suspect]
     Active Substance: OCRELIZUMAB
     Indication: Relapsing-remitting multiple sclerosis
     Route: 042
     Dates: start: 20211123, end: 20211209
  2. LEVOTHYROXINE [Concomitant]
     Active Substance: LEVOTHYROXINE
     Dosage: 50 MICROGRAMS (1-0-0)
  3. PENCICLOVIR [Concomitant]
     Active Substance: PENCICLOVIR
     Dosage: PENCICLOVIR AS NEEDED
  4. CORTISONE [Concomitant]
     Active Substance: CORTISONE
  5. CALENDULA [Concomitant]
     Active Substance: CALENDULA OFFICINALIS FLOWERING TOP

REACTIONS (34)
  - Fatigue [Recovered/Resolved]
  - Back pain [Recovered/Resolved]
  - Contusion [Not Recovered/Not Resolved]
  - Haematoma [Recovered/Resolved]
  - Headache [Recovered/Resolved]
  - Dizziness [Recovered/Resolved]
  - Balance disorder [Recovering/Resolving]
  - Visual impairment [Recovered/Resolved]
  - Epistaxis [Recovered/Resolved]
  - Oral herpes [Recovering/Resolving]
  - Lip pain [Recovered/Resolved]
  - Lymph node pain [Recovered/Resolved]
  - Cognitive disorder [Not Recovered/Not Resolved]
  - Nasopharyngitis [Recovered/Resolved]
  - Vertigo [Recovered/Resolved]
  - Cough [Recovered/Resolved]
  - Sneezing [Recovered/Resolved]
  - Angular cheilitis [Recovered/Resolved]
  - Onychomycosis [Recovered/Resolved]
  - Arthralgia [Recovering/Resolving]
  - Skin fissures [Recovering/Resolving]
  - Renal pain [Recovered/Resolved]
  - Weight decreased [Not Recovered/Not Resolved]
  - Decreased appetite [Not Recovered/Not Resolved]
  - Psoriasis [Not Recovered/Not Resolved]
  - Lacrimation increased [Recovered/Resolved]
  - Herpes virus infection [Recovered/Resolved]
  - Ocular icterus [Not Recovered/Not Resolved]
  - Skin exfoliation [Not Recovered/Not Resolved]
  - Dry skin [Not Recovered/Not Resolved]
  - Eyelid skin dryness [Not Recovered/Not Resolved]
  - Tinea pedis [Recovered/Resolved]
  - Gait disturbance [Recovered/Resolved]
  - Solar lentigo [Recovered/Resolved]

NARRATIVE: CASE EVENT DATE: 20211123
